FAERS Safety Report 9016469 (Version 1)
Quarter: 2013Q1

REPORT INFORMATION
  Report Type: Report from Study
  Country: US (occurrence: US)
  Receive Date: 20130116
  Receipt Date: 20130116
  Transmission Date: 20140127
  Serious: Yes (Hospitalization)
  Sender: FDA-Public Use
  Company Number: US-ABBOTT-13P-163-1035368-00

PATIENT
  Age: 15 Year
  Sex: Male

DRUGS (1)
  1. HUMIRA [Suspect]
     Indication: CROHN^S DISEASE
     Dates: start: 201010

REACTIONS (4)
  - Gastric disorder [Recovered/Resolved]
  - Clostridium difficile infection [Unknown]
  - Pyrexia [Unknown]
  - Oropharyngeal pain [Unknown]
